FAERS Safety Report 12533322 (Version 1)
Quarter: 2016Q3

REPORT INFORMATION
  Report Type: Spontaneous
  Country: US (occurrence: US)
  Receive Date: 20160706
  Receipt Date: 20160706
  Transmission Date: 20161109
  Serious: No
  Sender: FDA-Public Use
  Company Number: US-PURDUE-USA-2015-0127457

PATIENT
  Age: 54 Year
  Sex: Female

DRUGS (2)
  1. BUTRANS [Suspect]
     Active Substance: BUPRENORPHINE
     Dosage: UNK
     Route: 062
     Dates: start: 2012, end: 2012
  2. BUTRANS [Suspect]
     Active Substance: BUPRENORPHINE
     Indication: PAIN
     Dosage: 20 MCG/HR, WEEKLY
     Route: 062
     Dates: start: 201510

REACTIONS (6)
  - Pain [Unknown]
  - Urticaria [Unknown]
  - Herpes zoster [Unknown]
  - Application site pain [Unknown]
  - Application site swelling [Unknown]
  - Application site discolouration [Unknown]

NARRATIVE: CASE EVENT DATE: 201510
